FAERS Safety Report 25793016 (Version 1)
Quarter: 2025Q3

REPORT INFORMATION
  Report Type: Spontaneous
  Country: US (occurrence: US)
  Receive Date: 20250911
  Receipt Date: 20250911
  Transmission Date: 20251021
  Serious: Yes (Disabling, Other)
  Sender: CB FLEET
  Company Number: US-PRESTIGE-202509-US-002964

PATIENT

DRUGS (1)
  1. DEBROX [Suspect]
     Active Substance: CARBAMIDE PEROXIDE
     Indication: Product used for unknown indication
     Route: 001

REACTIONS (2)
  - Tympanic membrane perforation [Recovered/Resolved]
  - Deafness [Not Recovered/Not Resolved]
